FAERS Safety Report 9408150 (Version 1)
Quarter: 2013Q3

REPORT INFORMATION
  Report Type: Spontaneous
  Country: CH (occurrence: None)
  Receive Date: 20130716
  Receipt Date: 20130716
  Transmission Date: 20140515
  Serious: Yes (Other)
  Sender: FDA-Public Use
  Company Number: 20130329

PATIENT
  Age: 80 Year
  Sex: Male
  Weight: 75 kg

DRUGS (13)
  1. VENOFER [Suspect]
     Indication: ANAEMIA
     Route: 042
     Dates: start: 20130615, end: 20130615
  2. VENOFER [Suspect]
     Indication: NEOPLASM MALIGNANT
     Route: 042
     Dates: start: 20130615, end: 20130615
  3. ARANESP (DARBEPOETIN ALFA) [Concomitant]
  4. ATARAX (HYDROXYZINE) [Concomitant]
  5. BIONOLYTE (POTASSIUM CHLORIDE, SODIUM CHLORIDE AND GLUCOSE) [Concomitant]
  6. CERNEVIT (VITAMINS NOS) [Concomitant]
  7. DECAN (SOLUTION FOR INFUSTION OF OLIGOELEMENTS) [Concomitant]
  8. EXACYL (TRANEXAMIC ACID) [Concomitant]
  9. LANTUS (INSULIN GLARGINE) [Concomitant]
  10. NOVORAPID (INSULIN ASPART) [Concomitant]
  11. PERFALGAN [Concomitant]
  12. SOLUPRED (PREDNISOLONE) [Concomitant]
  13. SPASFON (PHLOROGLUCINOL, TRIMETHYLPHLOROGLUCINOL) [Concomitant]

REACTIONS (7)
  - Headache [None]
  - Off label use [None]
  - Nausea [None]
  - Vertigo [None]
  - Hyperglycaemia [None]
  - Malaise [None]
  - Pyrexia [None]
